FAERS Safety Report 22373415 (Version 5)
Quarter: 2023Q2

REPORT INFORMATION
  Report Type: Spontaneous
  Country: DE (occurrence: DE)
  Receive Date: 20230526
  Receipt Date: 20230627
  Transmission Date: 20230721
  Serious: Yes (Other)
  Sender: FDA-Public Use
  Company Number: None

PATIENT
  Age: 79 Year
  Sex: Male
  Weight: 81 kg

DRUGS (9)
  1. ATORVASTATIN [Suspect]
     Active Substance: ATORVASTATIN
     Indication: Product used for unknown indication
     Dosage: 0-0-1
     Route: 065
     Dates: start: 2020, end: 20200427
  2. ROSUVASTATIN [Suspect]
     Active Substance: ROSUVASTATIN
     Indication: Product used for unknown indication
     Dosage: 0-0-1
     Route: 065
     Dates: start: 20200529
  3. SIMVASTATIN [Suspect]
     Active Substance: SIMVASTATIN
     Indication: Hypercholesterolaemia
     Dosage: 0-0-1
     Route: 048
     Dates: start: 20221106
  4. ROSUVASTATIN [Suspect]
     Active Substance: ROSUVASTATIN
     Indication: Product used for unknown indication
     Dosage: 0-0-1
     Route: 065
  5. ASPIRIN [Concomitant]
     Active Substance: ASPIRIN
     Indication: Coronary artery disease
     Dosage: 1-0-0
     Route: 048
     Dates: start: 20201208
  6. BISOPROLOL [Concomitant]
     Active Substance: BISOPROLOL
     Indication: Atrial fibrillation
     Dosage: 1-0-1
     Route: 048
     Dates: start: 2020
  7. CANDESARTAN [Concomitant]
     Active Substance: CANDESARTAN
     Indication: Product used for unknown indication
     Dosage: 2 MG 1-0-1 (4 MG)
     Route: 048
     Dates: start: 20201213
  8. TAMSULOSIN [Concomitant]
     Active Substance: TAMSULOSIN
     Indication: Benign prostatic hyperplasia
     Dosage: 0-0-1
     Route: 048
     Dates: start: 2022
  9. TICAGRELOR [Concomitant]
     Active Substance: TICAGRELOR
     Indication: Product used for unknown indication
     Dosage: 1-0-1
     Route: 065
     Dates: start: 20201208, end: 202102

REACTIONS (9)
  - Skin mass [Unknown]
  - Pruritus [Unknown]
  - Leukaemia [Unknown]
  - Arthralgia [Unknown]
  - Hypersensitivity [Unknown]
  - Performance status decreased [Recovering/Resolving]
  - Leukocytosis [Unknown]
  - Haematocrit increased [Unknown]
  - Chronic myeloid leukaemia [Unknown]

NARRATIVE: CASE EVENT DATE: 20200401
